FAERS Safety Report 4298538-3 (Version None)
Quarter: 2004Q1

REPORT INFORMATION
  Report Type: 
  Country: None (occurrence: None)
  Receive Date: 20040218
  Receipt Date: 20040209
  Transmission Date: 20041129
  Serious: Yes (Hospitalization, Other)
  Sender: FDA-Public Use
  Company Number: AU-BRISTOL-MYERS SQUIBB COMPANY-12508420

PATIENT
  Age: 43 Year
  Sex: Male

DRUGS (3)
  1. WARFARIN SODIUM [Suspect]
     Indication: PULMONARY EMBOLISM
     Dosage: RECEIVED 14MG/DAY; INTENTIONALLY INGESTED 125 MG; THERAPY STOPPED + THEN RESTARTED.
     Route: 048
  2. WARFARIN SODIUM [Suspect]
     Indication: DEEP VEIN THROMBOSIS
     Dosage: RECEIVED 14MG/DAY; INTENTIONALLY INGESTED 125 MG; THERAPY STOPPED + THEN RESTARTED.
     Route: 048
  3. OXYCODONE HCL [Suspect]
     Dosage: SR

REACTIONS (3)
  - DEPRESSED LEVEL OF CONSCIOUSNESS [None]
  - INTERNATIONAL NORMALISED RATIO INCREASED [None]
  - OVERDOSE [None]
